FAERS Safety Report 9038875 (Version 1)
Quarter: 2013Q1

REPORT INFORMATION
  Report Type: Spontaneous
  Country: US (occurrence: None)
  Receive Date: 20130123
  Receipt Date: 20130123
  Transmission Date: 20140127
  Serious: Yes (Other)
  Sender: FDA-Public Use
  Company Number: None

PATIENT
  Age: 75 Year
  Sex: Female
  Weight: 90.72 kg

DRUGS (2)
  1. FEMARA [Suspect]
     Indication: BREAST CANCER
  2. LETROZOLE [Suspect]
     Dates: start: 201210, end: 201211

REACTIONS (5)
  - Dyspnoea [None]
  - Abasia [None]
  - Dizziness [None]
  - Presyncope [None]
  - Thinking abnormal [None]
